FAERS Safety Report 22608301 (Version 1)
Quarter: 2023Q2

REPORT INFORMATION
  Report Type: Report from Study
  Country: US (occurrence: US)
  Receive Date: 20230616
  Receipt Date: 20230616
  Transmission Date: 20230721
  Serious: No
  Sender: FDA-Public Use
  Company Number: US-002147023-NVSC2023US136777

PATIENT
  Sex: Male

DRUGS (5)
  1. MOMETASONE [Suspect]
     Active Substance: MOMETASONE
     Indication: Psoriasis
     Dosage: UNK
     Route: 065
  2. FLUOCINOLONE [Suspect]
     Active Substance: FLUOCINOLONE
     Indication: Psoriasis
     Dosage: UNK
     Route: 065
  3. METOPROLOL [Suspect]
     Active Substance: METOPROLOL
     Indication: Psoriasis
     Dosage: UNK
     Route: 065
  4. TRAMADOL [Suspect]
     Active Substance: TRAMADOL
     Indication: Psoriasis
     Dosage: UNK
     Route: 065
  5. IBUPROFEN [Suspect]
     Active Substance: IBUPROFEN
     Indication: Psoriasis
     Dosage: UNK
     Route: 065

REACTIONS (9)
  - Haemangioma of skin [Unknown]
  - Skin plaque [Unknown]
  - Benign neoplasm of skin [Unknown]
  - Lentigo [Unknown]
  - Seborrhoeic keratosis [Unknown]
  - Skin atrophy [Unknown]
  - Telangiectasia [Unknown]
  - Ephelides [Unknown]
  - Drug ineffective [Unknown]
